FAERS Safety Report 4428757-4 (Version None)
Quarter: 2004Q3

REPORT INFORMATION
  Report Type: 
  Country: None (occurrence: None)
  Receive Date: 20040818
  Receipt Date: 20040427
  Transmission Date: 20050211
  Serious: No
  Sender: FDA-Public Use
  Company Number: US-BRISTOL-MYERS SQUIBB COMPANY-12572061

PATIENT
  Age: 70 Year
  Sex: Female
  Weight: 75 kg

DRUGS (5)
  1. TEQUIN [Suspect]
     Indication: SINUSITIS
     Route: 048
     Dates: start: 20040411, end: 20050425
  2. TEQUIN [Suspect]
     Indication: PHARYNGITIS
     Route: 048
     Dates: start: 20040411, end: 20050425
  3. NORVASC [Concomitant]
  4. LIPITOR [Concomitant]
  5. ZOLOFT [Concomitant]

REACTIONS (1)
  - BLOOD GLUCOSE INCREASED [None]
